FAERS Safety Report 22220267 (Version 2)
Quarter: 2023Q2

REPORT INFORMATION
  Report Type: Spontaneous
  Country: US (occurrence: US)
  Receive Date: 20230417
  Receipt Date: 20230523
  Transmission Date: 20230721
  Serious: Yes (Other)
  Sender: FDA-Public Use
  Company Number: US-AMERICAN REGENT INC-2023000889

PATIENT
  Age: 47 Year
  Sex: Female

DRUGS (1)
  1. AMINOCAPROIC ACID [Suspect]
     Active Substance: AMINOCAPROIC ACID
     Indication: Product used for unknown indication
     Dosage: 5G (20ML) GIVEN AS IV BOLUS IN CENTRAL LINE
     Dates: start: 20230410, end: 20230410

REACTIONS (2)
  - Blood pressure increased [Recovered/Resolved]
  - Product quality issue [Unknown]

NARRATIVE: CASE EVENT DATE: 20230401
